FAERS Safety Report 8225393-9 (Version None)
Quarter: 2012Q1

REPORT INFORMATION
  Report Type: 
  Country: None (occurrence: None)
  Receive Date: 20120307
  Receipt Date: 20110217
  Transmission Date: 20120608
  Serious: No
  Sender: FDA-Public Use
  Company Number: PHHY2011US14790

PATIENT
  Sex: Male

DRUGS (4)
  1. CHOLESTEROL (CHOLESTEROL) [Concomitant]
  2. AMBIEN [Concomitant]
  3. AFINITOR [Suspect]
     Dosage: 40 MG, QD
  4. SUTENT [Suspect]

REACTIONS (4)
  - DRY MOUTH [None]
  - EPISTAXIS [None]
  - TENDERNESS [None]
  - BLISTER [None]
